FAERS Safety Report 12040993 (Version 1)
Quarter: 2016Q1

REPORT INFORMATION
  Report Type: Report from Study
  Country: US (occurrence: US)
  Receive Date: 20160208
  Receipt Date: 20160208
  Transmission Date: 20160526
  Serious: No
  Sender: FDA-Public Use
  Company Number: US-ABBVIE-15K-163-1530001-00

PATIENT
  Age: 47 Year
  Sex: Female

DRUGS (2)
  1. HUMIRA [Suspect]
     Active Substance: ADALIMUMAB
     Indication: PRODUCT USED FOR UNKNOWN INDICATION
     Route: 058
     Dates: start: 20141111
  2. NAPROXEN. [Suspect]
     Active Substance: NAPROXEN
     Indication: PRODUCT USED FOR UNKNOWN INDICATION
     Route: 065
     Dates: end: 2015

REACTIONS (5)
  - Joint swelling [Recovering/Resolving]
  - Rheumatoid arthritis [Recovered/Resolved]
  - Peripheral swelling [Unknown]
  - Abdominal discomfort [Unknown]
  - Haematemesis [Unknown]

NARRATIVE: CASE EVENT DATE: 201510
